FAERS Safety Report 24880085 (Version 1)
Quarter: 2025Q1

REPORT INFORMATION
  Report Type: Spontaneous
  Country: CN (occurrence: CN)
  Receive Date: 20250123
  Receipt Date: 20250123
  Transmission Date: 20250409
  Serious: Yes (Other)
  Sender: NOVARTIS
  Company Number: CN-002147023-NVSC2025CN011181

PATIENT

DRUGS (1)
  1. SACUBITRIL\VALSARTAN [Suspect]
     Active Substance: SACUBITRIL\VALSARTAN
     Indication: Cardiac failure chronic
     Dosage: 100 MG, BID ((STARTING DOSE) (THE DOSE WAS ADJUSTED ACCORDING TO THE PATIENT^S CLINICAL MANIFESTATIO
     Route: 065

REACTIONS (2)
  - Liver injury [Unknown]
  - Renal injury [Unknown]
